FAERS Safety Report 11082091 (Version 1)
Quarter: 2015Q2

REPORT INFORMATION
  Report Type: Spontaneous
  Country: JP (occurrence: None)
  Receive Date: 20150429
  Receipt Date: 20150429
  Transmission Date: 20150821
  Serious: Yes (Hospitalization)
  Sender: FDA-Public Use
  Company Number: FK201501957

PATIENT
  Age: 71 Year
  Sex: Male

DRUGS (9)
  1. CISPLATIN (MANUFACTURER UNKNOWN) (CISPLATIN) (CISPLATIN) [Suspect]
     Active Substance: CISPLATIN
     Indication: BILE DUCT CANCER
  2. GEMCITABINE [Suspect]
     Active Substance: GEMCITABINE\GEMCITABINE HYDROCHLORIDE
     Indication: BILE DUCT CANCER
  3. APREPITANT. [Concomitant]
     Active Substance: APREPITANT
  4. DEXAMETHASONE. [Concomitant]
     Active Substance: DEXAMETHASONE
  5. DIURETICS (DIURETICS) [Concomitant]
     Active Substance: UNSPECIFIED INGREDIENT
  6. AMLODIPINE [Concomitant]
     Active Substance: AMLODIPINE BESYLATE
  7. CISPLATIN (MANUFACTURER UNKNOWN) (CISPLATIN) (CISPLATIN) [Suspect]
     Active Substance: CISPLATIN
     Indication: METASTASES TO LIVER
  8. PALONOSETRON [Concomitant]
     Active Substance: PALONOSETRON
  9. GEMCITABINE [Suspect]
     Active Substance: GEMCITABINE\GEMCITABINE HYDROCHLORIDE
     Indication: METASTASES TO LIVER

REACTIONS (7)
  - Renal failure [None]
  - C-reactive protein increased [None]
  - White blood cell count increased [None]
  - Hepatic enzyme increased [None]
  - Colitis ischaemic [None]
  - Gastrointestinal necrosis [None]
  - Dehydration [None]
